FAERS Safety Report 17512474 (Version 1)
Quarter: 2020Q1

REPORT INFORMATION
  Report Type: Spontaneous
  Country: US (occurrence: US)
  Receive Date: 20200308
  Receipt Date: 20200308
  Transmission Date: 20200409
  Serious: No
  Sender: FDA-Public Use
  Company Number: US-ASTRAZENECA-2020SE25682

PATIENT
  Sex: Male

DRUGS (1)
  1. XIGDUO XR [Suspect]
     Active Substance: DAPAGLIFLOZIN PROPANEDIOL\METFORMIN HYDROCHLORIDE
     Dosage: STRENGTH : 5/1000 , UNKNOWN
     Route: 048

REACTIONS (4)
  - Retching [Unknown]
  - Wrong technique in product usage process [Unknown]
  - Choking [Unknown]
  - Foreign body in respiratory tract [Unknown]
